FAERS Safety Report 10372533 (Version 2)
Quarter: 2014Q3

REPORT INFORMATION
  Report Type: Spontaneous
  Country: US (occurrence: US)
  Receive Date: 20140808
  Receipt Date: 20140808
  Transmission Date: 20150326
  Serious: Yes (Other)
  Sender: FDA-Public Use
  Company Number: US-BRISTOL-MYERS SQUIBB COMPANY-19161942

PATIENT
  Age: 74 Year
  Sex: Male

DRUGS (2)
  1. PROGRAF [Interacting]
     Active Substance: TACROLIMUS\TACROLIMUS ANHYDROUS
  2. SPRYCEL [Suspect]
     Active Substance: DASATINIB
     Indication: CHRONIC MYELOID LEUKAEMIA
     Dosage: 1TAB?DOSE REDUCED TO 70MG DAILY
     Route: 048
     Dates: start: 201306

REACTIONS (6)
  - Drug interaction [Unknown]
  - Rash [Unknown]
  - Cough [Recovering/Resolving]
  - Anaemia [Unknown]
  - Respiratory tract congestion [Recovering/Resolving]
  - Folliculitis [Unknown]

NARRATIVE: CASE EVENT DATE: 2013
